FAERS Safety Report 7119495-8 (Version None)
Quarter: 2010Q4

REPORT INFORMATION
  Report Type: 
  Country: None (occurrence: None)
  Receive Date: 20101123
  Receipt Date: 20101115
  Transmission Date: 20110411
  Serious: Yes (Hospitalization)
  Sender: FDA-Public Use
  Company Number: US-B.I. PHARMACEUTICALS,INC./RIDGEFIELD-2010-BP-12849BP

PATIENT
  Sex: Male

DRUGS (2)
  1. PRADAXA [Suspect]
     Indication: ATRIAL FIBRILLATION
     Dosage: 300 MG
     Route: 048
     Dates: start: 20101108, end: 20101115
  2. VERAPAMIL [Suspect]
     Indication: ATRIAL FIBRILLATION

REACTIONS (3)
  - CARDIOMYOPATHY [None]
  - EJECTION FRACTION ABNORMAL [None]
  - SYNCOPE [None]
